FAERS Safety Report 15545381 (Version 1)
Quarter: 2018Q4

REPORT INFORMATION
  Report Type: Spontaneous
  Country: US (occurrence: US)
  Receive Date: 20181017
  Receipt Date: 20181017
  Transmission Date: 20190205
  Serious: Yes (Other)
  Sender: FDA-Public Use
  Company Number: None

PATIENT
  Age: 60 Year
  Sex: Male
  Weight: 90.9 kg

DRUGS (5)
  1. PEMBROLZUMAB 100 MG [Suspect]
     Active Substance: PEMBROLIZUMAB
     Dates: start: 20181001
  2. PEMBROLZUMAB 100 MG [Suspect]
     Active Substance: PEMBROLIZUMAB
     Indication: SQUAMOUS CELL CARCINOMA OF HEAD AND NECK
     Route: 042
     Dates: start: 20180730
  3. IMRT [Concomitant]
     Active Substance: RADIATION THERAPY
  4. PEMBROLZUMAB 100 MG [Suspect]
     Active Substance: PEMBROLIZUMAB
     Dates: start: 20180820
  5. PEMBROLZUMAB 100 MG [Suspect]
     Active Substance: PEMBROLIZUMAB
     Dates: start: 20180910

REACTIONS (1)
  - Peripheral sensory neuropathy [None]

NARRATIVE: CASE EVENT DATE: 20181016
